FAERS Safety Report 7688081-3 (Version None)
Quarter: 2011Q3

REPORT INFORMATION
  Report Type: 
  Country: None (occurrence: None)
  Receive Date: 20110817
  Receipt Date: 20110808
  Transmission Date: 20111222
  Serious: Yes (Death, Other)
  Sender: FDA-Public Use
  Company Number: JP-BRISTOL-MYERS SQUIBB COMPANY-15973654

PATIENT
  Age: 12 Year
  Sex: Male

DRUGS (2)
  1. CISPLATIN [Suspect]
     Indication: GERM CELL CANCER
     Dosage: DOSE REDUCTION OF ICE TO 60%
  2. ETOPOSIDE [Suspect]
     Indication: GERM CELL CANCER
     Dosage: DOSE REDUCTION OF ICE TO 60%

REACTIONS (2)
  - PNEUMONIA [None]
  - DEATH [None]
